FAERS Safety Report 18776409 (Version 1)
Quarter: 2021Q1

REPORT INFORMATION
  Report Type: Spontaneous
  Country: DE (occurrence: DE)
  Receive Date: 20210122
  Receipt Date: 20210122
  Transmission Date: 20210419
  Serious: Yes (Other)
  Sender: FDA-Public Use
  Company Number: DE-ANIPHARMA-2021-DE-000010

PATIENT
  Age: 72 Year
  Sex: Female
  Weight: 89 kg

DRUGS (8)
  1. DAPAGLIFLOZIN. [Suspect]
     Active Substance: DAPAGLIFLOZIN
     Dosage: UNKNOWN DOSE AND FREQUENCY
     Route: 048
     Dates: start: 2015
  2. AMITRIPTYLINE [Concomitant]
     Active Substance: AMITRIPTYLINE
     Dosage: UNKNOWN DOSE AND FREQUENCY
     Route: 065
     Dates: start: 2009
  3. METFORMIN [Concomitant]
     Active Substance: METFORMIN HYDROCHLORIDE
     Dosage: 1000 MG UNK R
     Route: 065
     Dates: start: 2015
  4. CANDESARTAN CILEXETIL. [Suspect]
     Active Substance: CANDESARTAN CILEXETIL
     Indication: HYPERTENSION
     Dosage: UNKNOWN DOSE AND FREQUENCY
     Route: 048
     Dates: start: 2015
  5. ATORVASTATIN [Concomitant]
     Active Substance: ATORVASTATIN
     Dosage: UNKNOWN DOSE AND FREQUENCY
     Route: 065
     Dates: start: 2015
  6. CITALOPRAM [Concomitant]
     Active Substance: CITALOPRAM HYDROBROMIDE
     Dosage: UNKNOWN DOSE AND FREQUENCY
     Route: 065
     Dates: start: 2015
  7. AMLODIPINE [Concomitant]
     Active Substance: AMLODIPINE BESYLATE
     Dosage: UNKNOWN DOSE AND FREQUENCY
     Route: 065
  8. TORASEMIDE [Concomitant]
     Active Substance: TORSEMIDE
     Dosage: UNKNOWN DOSE AND FREQUENCY
     Route: 065
     Dates: start: 2015

REACTIONS (4)
  - Blood pressure increased [Not Recovered/Not Resolved]
  - Glomerular filtration rate decreased [Not Recovered/Not Resolved]
  - Blood glucose increased [Not Recovered/Not Resolved]
  - Low density lipoprotein increased [Not Recovered/Not Resolved]

NARRATIVE: CASE EVENT DATE: 2015
